FAERS Safety Report 5207208-6 (Version None)
Quarter: 2007Q1

REPORT INFORMATION
  Report Type: 
  Country: None (occurrence: None)
  Receive Date: 20070112
  Receipt Date: 20070108
  Transmission Date: 20070707
  Serious: Yes (Hospitalization)
  Sender: FDA-Public Use
  Company Number: FR-GLAXOSMITHKLINE-B0453292A

PATIENT
  Age: 26 Year
  Sex: Female
  Weight: 60 kg

DRUGS (6)
  1. IMUREL [Suspect]
     Indication: MIXED CONNECTIVE TISSUE DISEASE
     Dosage: 100MG PER DAY
     Route: 048
     Dates: start: 20020101, end: 20061126
  2. CLAMOXYL [Suspect]
     Indication: PERICARDITIS
     Dosage: 1G THREE TIMES PER DAY
     Route: 048
     Dates: start: 20061118, end: 20061125
  3. ASPEGIC 1000 [Suspect]
     Indication: PERICARDITIS
     Route: 048
     Dates: start: 20061101, end: 20061204
  4. COLCHIMAX [Suspect]
     Indication: PERICARDITIS
     Dosage: 1UNIT PER DAY
     Route: 048
     Dates: start: 20061118, end: 20061130
  5. LEVOTHYROXINE SODIUM [Suspect]
     Indication: AUTOIMMUNE THYROIDITIS
     Dosage: 125MG PER DAY
     Route: 048
     Dates: start: 20060901
  6. RULID [Suspect]
     Indication: PERICARDITIS
     Route: 048
     Dates: start: 20061101, end: 20061118

REACTIONS (19)
  - ALDOLASE INCREASED [None]
  - BLOOD CREATINE PHOSPHOKINASE INCREASED [None]
  - BLOOD IMMUNOGLOBULIN A INCREASED [None]
  - BLOOD IMMUNOGLOBULIN G INCREASED [None]
  - BLOOD THYROID STIMULATING HORMONE INCREASED [None]
  - CHOLESTASIS [None]
  - GAMMA-GLUTAMYLTRANSFERASE INCREASED [None]
  - HEPATIC FAILURE [None]
  - HEPATOCELLULAR DAMAGE [None]
  - LYMPHOPENIA [None]
  - MULTI-ORGAN FAILURE [None]
  - MYOSITIS [None]
  - PRURITUS [None]
  - PULMONARY FIBROSIS [None]
  - PYREXIA [None]
  - RASH MACULO-PAPULAR [None]
  - RESPIRATORY DISORDER [None]
  - RESPIRATORY FAILURE [None]
  - THROMBOCYTHAEMIA [None]
